FAERS Safety Report 7900237-0 (Version None)
Quarter: 2011Q4

REPORT INFORMATION
  Report Type: 
  Country: None (occurrence: None)
  Receive Date: 20111108
  Receipt Date: 20111028
  Transmission Date: 20120403
  Serious: Yes (Hospitalization)
  Sender: FDA-Public Use
  Company Number: US-CELGENEUS-163-21880-11080276

PATIENT
  Sex: Male

DRUGS (12)
  1. ALLOPURINOL [Concomitant]
     Indication: GOUT
     Dosage: 200 MILLIGRAM
     Route: 065
  2. NIFEDIPINE [Concomitant]
     Indication: HYPERTENSION
     Dosage: 120 MILLIGRAM
     Route: 065
  3. REVLIMID [Suspect]
     Indication: MULTIPLE MYELOMA
     Dosage: 25 MILLIGRAM
     Route: 048
     Dates: start: 20110701, end: 20110721
  4. ATENOLOL [Concomitant]
     Indication: HYPERTENSION
     Dosage: 50 MILLIGRAM
     Route: 065
  5. SIMVASTATIN [Concomitant]
     Indication: LIPIDS INCREASED
     Dosage: 20 MILLIGRAM
     Route: 065
  6. REVLIMID [Suspect]
     Dosage: 25 MILLIGRAM
     Route: 048
     Dates: start: 20110818
  7. SENNA [Concomitant]
     Indication: CONSTIPATION
     Route: 065
  8. HYDROCODONE BITARTRATE [Concomitant]
     Indication: GOUT
     Dosage: 5 MILLIGRAM
     Route: 065
  9. DEXAMETHASONE [Concomitant]
     Indication: MULTIPLE MYELOMA
     Route: 065
  10. HUMULIN 70/30 [Concomitant]
     Indication: DIABETES MELLITUS
     Dosage: 15U
     Route: 065
  11. ASPIRIN [Concomitant]
     Indication: PROPHYLAXIS
     Dosage: 325 MILLIGRAM
     Route: 065
  12. ASPIRIN [Concomitant]
     Indication: CHEMOTHERAPY

REACTIONS (3)
  - UMBILICAL HERNIA [None]
  - INGUINAL HERNIA [None]
  - SMALL INTESTINAL OBSTRUCTION [None]
